FAERS Safety Report 4615937-8 (Version None)
Quarter: 2005Q1

REPORT INFORMATION
  Report Type: 
  Country: None (occurrence: None)
  Receive Date: 20050318
  Receipt Date: 20050225
  Transmission Date: 20050727
  Serious: Yes (Hospitalization, Other)
  Sender: FDA-Public Use
  Company Number: PHBS2005TW01322

PATIENT
  Sex: Male
  Weight: 72.0312 kg

DRUGS (3)
  1. VISUDYNE [Suspect]
     Indication: MACULAR DEGENERATION
     Dosage: 10.8 MG DAILY IV
     Route: 042
     Dates: start: 20050121, end: 20050121
  2. ALLEGRA [Concomitant]
  3. FLUORESCEIN [Concomitant]

REACTIONS (2)
  - RETINAL HAEMORRHAGE [None]
  - VISUAL ACUITY REDUCED [None]
